FAERS Safety Report 6194186-9 (Version None)
Quarter: 2009Q2

REPORT INFORMATION
  Report Type: 
  Country: None (occurrence: None)
  Receive Date: 20090518
  Receipt Date: 20090511
  Transmission Date: 20091009
  Serious: Yes (Other)
  Sender: FDA-Public Use
  Company Number: BE-JNJCH-2009013166

PATIENT
  Age: 80 Year
  Sex: Female

DRUGS (8)
  1. SINUTAB FORTE 500/30MG [Suspect]
     Indication: INFECTION
     Dosage: TEXT:1 TABLET A DAY IN THE EVENING
     Route: 048
     Dates: start: 20090401, end: 20090404
  2. AMOCLAN [Concomitant]
     Indication: INFECTION
     Dosage: TEXT:3 X 1 / DAY
     Route: 065
  3. NORTUSSINE [Concomitant]
     Indication: INFECTION
     Dosage: TEXT:3 X 5ML / DAY
     Route: 065
     Dates: start: 20090401, end: 20090404
  4. WELLBUTRIN [Concomitant]
     Indication: DEPRESSION
     Dosage: TEXT:1/ DAY
     Route: 065
  5. FLUOXETINE HCL [Concomitant]
     Indication: DEPRESSION
     Dosage: TEXT:1/ DAY IN THE EVENING
     Route: 065
  6. FLUANXOL ^BAYER^ [Concomitant]
     Indication: DEPRESSION
     Dosage: TEXT:1/ DAY IN THE EVENING
     Route: 065
  7. OXAZEPAM [Concomitant]
     Indication: DEPRESSION
     Dosage: TEXT:1/ DAY IN THE EVENING
     Route: 065
  8. REDOMEX [Concomitant]
     Indication: DEPRESSION
     Dosage: TEXT:1/ DAY IN THE EVENING
     Route: 065

REACTIONS (3)
  - HYPERHIDROSIS [None]
  - HYPERTENSION [None]
  - RESTLESSNESS [None]
